FAERS Safety Report 7484937-5 (Version None)
Quarter: 2011Q2

REPORT INFORMATION
  Report Type: 
  Country: None (occurrence: None)
  Receive Date: 20110517
  Receipt Date: 20110511
  Transmission Date: 20111010
  Serious: Yes (Hospitalization)
  Sender: FDA-Public Use
  Company Number: B0719507A

PATIENT
  Age: 24 Year
  Sex: Female

DRUGS (4)
  1. LAMICTAL [Suspect]
     Dosage: 50MG PER DAY
     Route: 065
  2. VALPROIC ACID [Suspect]
     Dosage: 300MG TWICE PER DAY
     Route: 065
  3. FLUOXETINE HCL [Suspect]
     Dosage: 20MG PER DAY
     Route: 065
  4. UNKNOWN DRUG [Suspect]
     Route: 065

REACTIONS (1)
  - PNEUMONIA MYCOPLASMAL [None]
